FAERS Safety Report 19578380 (Version 2)
Quarter: 2021Q3

REPORT INFORMATION
  Report Type: Spontaneous
  Country: US (occurrence: US)
  Receive Date: 20210719
  Receipt Date: 20210728
  Transmission Date: 20211014
  Serious: Yes (Other)
  Sender: FDA-Public Use
  Company Number: US-PFIZER INC-2021365959

PATIENT
  Age: 29 Year
  Sex: Male

DRUGS (2)
  1. COVID?19 VACCINE [Concomitant]
  2. XELJANZ [Suspect]
     Active Substance: TOFACITINIB CITRATE
     Indication: COLITIS ULCERATIVE
     Dosage: 10 MG, 2X/DAY
     Route: 048
     Dates: start: 20210216

REACTIONS (3)
  - Colitis [Unknown]
  - Condition aggravated [Recovering/Resolving]
  - Anxiety [Unknown]
